FAERS Safety Report 9174056 (Version 1)
Quarter: 2013Q1

REPORT INFORMATION
  Report Type: Spontaneous
  Country: US (occurrence: US)
  Receive Date: 20130320
  Receipt Date: 20130320
  Transmission Date: 20140127
  Serious: No
  Sender: FDA-Public Use
  Company Number: US-MYLANLABS-2012S1025961

PATIENT
  Age: 87 Year
  Sex: Male

DRUGS (1)
  1. AMIODARONE HYDROCHLORIDE TABLETS [Suspect]
     Indication: ATRIAL FIBRILLATION

REACTIONS (1)
  - Blood creatinine increased [Not Recovered/Not Resolved]
